FAERS Safety Report 7072608-9 (Version None)
Quarter: 2010Q4

REPORT INFORMATION
  Report Type: 
  Country: None (occurrence: None)
  Receive Date: 20101029
  Receipt Date: 20100218
  Transmission Date: 20110411
  Serious: No
  Sender: FDA-Public Use
  Company Number: A0845202A

PATIENT
  Age: 71 Year
  Sex: Female

DRUGS (11)
  1. ADVAIR DISKUS 100/50 [Suspect]
     Indication: ASTHMA
     Dosage: 1PUFF TWICE PER DAY
     Route: 055
     Dates: start: 20100108, end: 20100113
  2. PROTONIX [Concomitant]
  3. THEOPHYLLINE [Concomitant]
  4. ALBUTEROL [Concomitant]
  5. LISINOPRIL [Concomitant]
  6. VERAPAMIL [Concomitant]
  7. ASACOL [Concomitant]
  8. CIPRO [Concomitant]
  9. SEREVENT [Concomitant]
  10. CALCIUM + D [Concomitant]
  11. LAXATIVE [Concomitant]

REACTIONS (5)
  - CONSTIPATION [None]
  - HEADACHE [None]
  - HYPOAESTHESIA [None]
  - OEDEMA PERIPHERAL [None]
  - OSTEOPOROSIS [None]
